FAERS Safety Report 14313975 (Version 10)
Quarter: 2018Q3

REPORT INFORMATION
  Report Type: Report from Study
  Country: BE (occurrence: BE)
  Receive Date: 20171221
  Receipt Date: 20180808
  Transmission Date: 20181010
  Serious: Yes (Hospitalization)
  Sender: FDA-Public Use
  Company Number: BE-ROCHE-2038896

PATIENT
  Age: 59 Year
  Sex: Male
  Weight: 83.1 kg

DRUGS (22)
  1. FOLINIC ACID [Suspect]
     Active Substance: LEUCOVORIN
     Dosage: ON 11/FEB/2018, MOST RECENT DOSE WAS RECEIVED.
     Route: 042
     Dates: start: 20171215
  2. LITICAN [Concomitant]
     Active Substance: ALIZAPRIDE HYDROCHLORIDE
     Indication: PROPHYLAXIS
     Route: 065
     Dates: start: 20171123
  3. FOLINIC ACID [Suspect]
     Active Substance: LEUCOVORIN
     Indication: COLORECTAL CANCER METASTATIC
     Dosage: AT 15:31 ON 23/NOV/2017, THE MOST RECENT DOSE OF DRUG (400MG) PRIOR TO AE WAS RECEIVED.
     Route: 042
     Dates: start: 20171026, end: 20171125
  4. ALOXI [Concomitant]
     Active Substance: PALONOSETRON HYDROCHLORIDE
     Indication: PROPHYLAXIS OF NAUSEA AND VOMITING
  5. AACIDEXAM [Concomitant]
     Active Substance: DEXAMETHASONE
     Indication: PROPHYLAXIS OF NAUSEA AND VOMITING
  6. CALCIUMGLUCONAAT [Concomitant]
     Indication: PROPHYLAXIS
     Route: 065
     Dates: start: 20171026
  7. IMODIUM [Concomitant]
     Active Substance: LOPERAMIDE HYDROCHLORIDE
     Indication: DIARRHOEA
     Route: 065
     Dates: start: 20171208
  8. PANTOMED (BELGIUM) [Concomitant]
     Indication: ABDOMINAL PAIN UPPER
     Route: 065
     Dates: start: 20171207, end: 20171215
  9. ZYRTEC [Concomitant]
     Active Substance: CETIRIZINE HYDROCHLORIDE
     Indication: PRURITUS
     Route: 065
     Dates: start: 20180112, end: 20180112
  10. ALOXI [Concomitant]
     Active Substance: PALONOSETRON HYDROCHLORIDE
     Indication: PROPHYLAXIS OF NAUSEA AND VOMITING
     Route: 065
     Dates: start: 20171026
  11. IBUPROFEN. [Suspect]
     Active Substance: IBUPROFEN
     Indication: ULNAR NEURITIS
     Dosage: FOR 3 WEEKS
     Route: 065
     Dates: start: 20180209
  12. PANTOMED (BELGIUM) [Concomitant]
     Route: 065
     Dates: start: 20171215
  13. FLUOROURACIL. [Suspect]
     Active Substance: FLUOROURACIL
     Indication: COLORECTAL CANCER METASTATIC
     Dosage: AT 15:31 ON 23/NOV/2017, THE MOST RECENT DOSE OF DRUG PRIOR TO AE WAS RECEIVED.?FLUOROURACIL BOLUS 8
     Route: 042
     Dates: start: 20171026, end: 20171125
  14. OXALIPLATIN. [Suspect]
     Active Substance: OXALIPLATIN
     Indication: COLORECTAL CANCER METASTATIC
     Dosage: AT 15:31 ON 23/NOV/2017, THE MOST RECENT DOSE OF DRUG (170 MG) PRIOR TO AE WAS RECEIVED.
     Route: 042
     Dates: start: 20171026, end: 20171125
  15. AACIDEXAM [Concomitant]
     Active Substance: DEXAMETHASONE
     Indication: PROPHYLAXIS OF NAUSEA AND VOMITING
     Route: 065
     Dates: start: 20171026
  16. MAGNESIUMSULFAAT [Concomitant]
     Indication: ACUTE KIDNEY INJURY
     Route: 065
     Dates: start: 20171208, end: 20171208
  17. BEVACIZUMAB. [Suspect]
     Active Substance: BEVACIZUMAB
     Indication: COLORECTAL CANCER METASTATIC
     Dosage: ON DAY 1 OF EVERY 2?WEEK CYCLE.?AT 14:35 ON 23/NOV/2017, THE MOST RECENT DOSE OF DRUG (419 MG) PRIOR
     Route: 042
     Dates: start: 20171026, end: 20171125
  18. BEVACIZUMAB. [Suspect]
     Active Substance: BEVACIZUMAB
     Dosage: MOST RECENT DOSE RECEIVED ON 09/FEB/2018 (460 MG).
     Route: 042
     Dates: start: 20171215
  19. FLUOROURACIL. [Suspect]
     Active Substance: FLUOROURACIL
     Dosage: ON 11/FEB/2018, MOST RECENT DOSE WAS RECEIVED.
     Route: 042
     Dates: start: 20171215
  20. OXALIPLATIN. [Suspect]
     Active Substance: OXALIPLATIN
     Dosage: ON 11/FEB/2018, MOST RECENT DOSE WAS RECEIVED.
     Route: 042
     Dates: start: 20171215
  21. BISOPROLOL [Concomitant]
     Active Substance: BISOPROLOL
     Route: 065
     Dates: start: 20170315
  22. MAGNESIUMSULFAAT [Concomitant]
     Indication: PROPHYLAXIS
     Route: 065
     Dates: start: 20171026

REACTIONS (2)
  - Acute kidney injury [Recovered/Resolved]
  - Acute kidney injury [Recovered/Resolved]

NARRATIVE: CASE EVENT DATE: 20171207
